FAERS Safety Report 5612891-7 (Version None)
Quarter: 2008Q1

REPORT INFORMATION
  Report Type: 
  Country: None (occurrence: None)
  Receive Date: 20080204
  Receipt Date: 20080122
  Transmission Date: 20080703
  Serious: Yes (Life-Threatening)
  Sender: FDA-Public Use
  Company Number: JP-BOEHRINGER INGELHEIM GMBH, GERMANY-2007-BP-18088NB

PATIENT
  Sex: Female
  Weight: 44.6 kg

DRUGS (9)
  1. BI-SIFROL TABLETS [Suspect]
     Indication: PARKINSON'S DISEASE
     Route: 048
     Dates: start: 20070512, end: 20070623
  2. UNASYN [Suspect]
     Indication: PNEUMONIA ASPIRATION
     Route: 042
     Dates: start: 20070621, end: 20070623
  3. ARTANE [Concomitant]
     Indication: NERVOUS SYSTEM DISORDER
     Route: 048
     Dates: start: 20030531
  4. GABALON [Concomitant]
     Indication: NERVOUS SYSTEM DISORDER
     Route: 048
     Dates: start: 20061114
  5. CABERGOLINE [Concomitant]
     Indication: NERVOUS SYSTEM DISORDER
     Route: 048
     Dates: start: 20021207
  6. LIORESAL [Concomitant]
     Route: 048
  7. DOPACOL [Concomitant]
     Indication: PARKINSON'S DISEASE
     Route: 048
  8. STOBRUN [Concomitant]
     Indication: PARKINSON'S DISEASE
     Route: 048
  9. CARBIDOPA AND LEVODOPA [Concomitant]
     Indication: NERVOUS SYSTEM DISORDER
     Route: 048
     Dates: start: 20030426

REACTIONS (1)
  - AGRANULOCYTOSIS [None]
